FAERS Safety Report 10645853 (Version 1)
Quarter: 2014Q4

REPORT INFORMATION
  Report Type: Spontaneous
  Country: CH (occurrence: CH)
  Receive Date: 20141211
  Receipt Date: 20141211
  Transmission Date: 20150529
  Serious: Yes (Hospitalization)
  Sender: FDA-Public Use
  Company Number: CH-CELGENE-CHE-2014121213

PATIENT
  Age: 69 Year
  Sex: Male

DRUGS (2)
  1. AZACITIDINE. [Suspect]
     Active Substance: AZACITIDINE
     Indication: MYELODYSPLASTIC SYNDROME
     Dosage: MONTLY 190 MG
     Route: 058
     Dates: start: 201403
  2. AZACITIDINE. [Suspect]
     Active Substance: AZACITIDINE
     Indication: REFRACTORY ANAEMIA WITH AN EXCESS OF BLASTS

REACTIONS (1)
  - Nephrogenic diabetes insipidus [Recovering/Resolving]

NARRATIVE: CASE EVENT DATE: 201409
